FAERS Safety Report 6734495-5 (Version None)
Quarter: 2010Q2

REPORT INFORMATION
  Report Type: 
  Country: None (occurrence: None)
  Receive Date: 20100520
  Receipt Date: 20100507
  Transmission Date: 20101027
  Serious: Yes (Hospitalization, Other)
  Sender: FDA-Public Use
  Company Number: ES-ELI_LILLY_AND_COMPANY-ES201005001982

PATIENT
  Sex: Female
  Weight: 45 kg

DRUGS (19)
  1. FORTEO [Suspect]
     Indication: OSTEOPOROSIS
     Dosage: 20 UG, DAILY (1/D)
     Route: 058
     Dates: start: 20090824, end: 20091201
  2. FORTEO [Suspect]
     Dosage: 20 UG, DAILY (1/D)
     Route: 058
     Dates: start: 20100220, end: 20100430
  3. FLUMIL                             /00082801/ [Concomitant]
     Indication: ASTHMA
     Dosage: 600 MG, 3/D
     Route: 048
  4. EMPORTAL [Concomitant]
     Indication: CONSTIPATION
     Dosage: UNK, 2/D
     Route: 048
  5. PANTOPRAZOLE SODIUM [Concomitant]
     Indication: GASTRIC DISORDER
     Dosage: 40 MG, DAILY (1/D)
     Route: 048
  6. SEROXAT [Concomitant]
     Dosage: 20 MG, DAILY (1/D)
     Route: 048
  7. DIGOXIN [Concomitant]
     Indication: ARRHYTHMIA
     Dosage: 0.25 MEQ, DAILY (1/D)
     Route: 048
  8. LORAZEPAM [Concomitant]
     Indication: ANXIETY
     Dosage: UNK(1/2 PASTILLA), 2/D
     Route: 048
  9. DORMITAL [Concomitant]
     Indication: SOMNOLENCE
     Dosage: 30 MG, DAILY (1/D)
     Route: 048
  10. MASDIL [Concomitant]
     Indication: ARRHYTHMIA
     Dosage: 60 MG, 3/D
     Route: 048
  11. SPIRIVA [Concomitant]
     Indication: ASTHMA
     Dosage: UNK, UNKNOWN
     Route: 055
  12. SYMBICORT [Concomitant]
     Indication: ASTHMA
     Dosage: UNK, UNKNOWN
     Route: 055
  13. CALCIO [Concomitant]
     Indication: OSTEOPOROSIS
     Dosage: UNK, DAILY (1/D)
     Route: 065
  14. SEGURIL [Concomitant]
     Dosage: 20 MG, DAILY (1/D)
     Route: 048
  15. ZAMENE [Concomitant]
     Indication: ASTHMA
     Dosage: 6 MG, (1 PILL AND HALF A DAY) OTHER
     Route: 048
  16. HIDROFEROL [Concomitant]
     Indication: OSTEOPOROSIS
     Dosage: 266 MG, DAILY (1/D)
     Route: 048
  17. EFFERALGAN                         /00020001/ [Concomitant]
     Indication: PAIN
     Dosage: UNK, EVERY 4 HRS
     Route: 048
  18. ACOVA [Concomitant]
     Indication: HYPERTENSION
     Dosage: UNK, 2/D
     Route: 065
  19. INSULINA                           /01223201/ [Concomitant]
     Indication: DIABETES MELLITUS
     Dosage: 10 UL, EACH EVENING
     Route: 058

REACTIONS (6)
  - ACNE [None]
  - H1N1 INFLUENZA [None]
  - NOSOCOMIAL INFECTION [None]
  - PALPITATIONS [None]
  - PNEUMONIA [None]
  - TREMOR [None]
